FAERS Safety Report 5224378-4 (Version None)
Quarter: 2007Q1

REPORT INFORMATION
  Report Type: 
  Country: None (occurrence: None)
  Receive Date: 20070130
  Receipt Date: 20070118
  Transmission Date: 20070707
  Serious: Yes (Other)
  Sender: FDA-Public Use
  Company Number: ES-PFIZER INC-2005172531

PATIENT
  Sex: Male
  Weight: 65 kg

DRUGS (4)
  1. SOGILEN [Suspect]
     Indication: PARKINSON'S DISEASE
     Dosage: DAILY DOSE:4MG-FREQ:UNKNOWN
     Route: 048
  2. SOGILEN [Suspect]
     Dosage: DAILY DOSE:3MG-FREQ:UNKNOWN
     Route: 048
  3. AMLODIPINE [Concomitant]
     Dosage: TEXT:UNKNOWN-FREQ:UNKNOWN
     Route: 048
  4. LEVODOPA [Concomitant]
     Dosage: TEXT:UNKNOWN-FREQ:UNKNOWN
     Route: 048

REACTIONS (4)
  - ADVERSE EVENT [None]
  - HALLUCINATION [None]
  - PARKINSON'S DISEASE [None]
  - PSYCHOMOTOR HYPERACTIVITY [None]
